FAERS Safety Report 11592591 (Version 2)
Quarter: 2015Q4

REPORT INFORMATION
  Report Type: Spontaneous
  Country: US (occurrence: US)
  Receive Date: 20151005
  Receipt Date: 20151007
  Transmission Date: 20160304
  Serious: Yes (Other)
  Sender: FDA-Public Use
  Company Number: US-JNJFOC-20150921235

PATIENT
  Age: 38 Year
  Sex: Female

DRUGS (5)
  1. MOTRIN [Suspect]
     Active Substance: IBUPROFEN
     Route: 065
  2. TYLENOL [Suspect]
     Active Substance: ACETAMINOPHEN
     Indication: PRODUCT USED FOR UNKNOWN INDICATION
     Route: 065
  3. MOTRIN [Suspect]
     Active Substance: IBUPROFEN
     Indication: PRODUCT USED FOR UNKNOWN INDICATION
     Route: 065
  4. CLARAVIS [Suspect]
     Active Substance: ISOTRETINOIN
     Indication: ACNE
     Route: 065
     Dates: start: 20150501
  5. TYLENOL [Suspect]
     Active Substance: ACETAMINOPHEN
     Route: 065

REACTIONS (12)
  - Ocular hyperaemia [Unknown]
  - Insomnia [Unknown]
  - Feeling of body temperature change [Unknown]
  - Feeling hot [Unknown]
  - Ocular icterus [Unknown]
  - Chest discomfort [Unknown]
  - Headache [Unknown]
  - Fatigue [Unknown]
  - Dry skin [Unknown]
  - Ocular discomfort [Unknown]
  - Asthenia [Unknown]
  - Head discomfort [Unknown]

NARRATIVE: CASE EVENT DATE: 201505
